FAERS Safety Report 20087345 (Version 2)
Quarter: 2021Q4

REPORT INFORMATION
  Report Type: Spontaneous
  Country: CN (occurrence: CN)
  Receive Date: 20211118
  Receipt Date: 20211119
  Transmission Date: 20220303
  Serious: Yes (Hospitalization, Other)
  Sender: FDA-Public Use
  Company Number: CN-ViiV Healthcare Limited-CN2015GSK008152

PATIENT
  Age: 54 Year
  Sex: Female
  Weight: 55.5 kg

DRUGS (3)
  1. VIREAD [Suspect]
     Active Substance: TENOFOVIR DISOPROXIL FUMARATE
     Indication: HIV infection
     Dosage: 0.3 G, QD
     Route: 048
     Dates: start: 20121201, end: 20140815
  2. KALETRA [Suspect]
     Active Substance: LOPINAVIR\RITONAVIR
     Indication: HIV infection
     Dosage: 0.5 G, BID
     Route: 048
     Dates: start: 20121201, end: 20140903
  3. LAMIVUDINE [Suspect]
     Active Substance: LAMIVUDINE
     Indication: HIV infection
     Dosage: 0.3 G, QD
     Route: 048
     Dates: start: 20121201, end: 20140903

REACTIONS (7)
  - Renal failure [Recovering/Resolving]
  - Hypokalaemia [Recovering/Resolving]
  - Acquired immunodeficiency syndrome [Unknown]
  - Decreased appetite [Unknown]
  - Nausea [Unknown]
  - Vomiting [Unknown]
  - Abdominal distension [Unknown]

NARRATIVE: CASE EVENT DATE: 20140815
